FAERS Safety Report 8108881-5 (Version None)
Quarter: 2012Q1

REPORT INFORMATION
  Report Type: 
  Country: None (occurrence: None)
  Receive Date: 20120202
  Receipt Date: 20120130
  Transmission Date: 20120608
  Serious: Yes (Death)
  Sender: FDA-Public Use
  Company Number: US-GLAXOSMITHKLINE-A0963752A

PATIENT
  Age: 54 Year
  Sex: Female

DRUGS (13)
  1. PULMICORT-100 [Concomitant]
  2. CLARINEX [Concomitant]
  3. FUROSEMIDE [Concomitant]
  4. VENTOLIN [Suspect]
     Indication: ASTHMA
     Dosage: 1PUFF AS REQUIRED
     Route: 055
  5. FLONASE [Suspect]
     Indication: ASTHMA
     Dosage: 2SPR PER DAY
     Route: 045
  6. NEXIUM [Concomitant]
  7. VESICARE [Concomitant]
  8. CELEXA [Concomitant]
  9. POTASSIUM [Concomitant]
  10. SINGULAIR [Concomitant]
  11. DOXAZOSIN [Concomitant]
  12. FLOVENT [Suspect]
     Indication: ASTHMA
     Dosage: 1PUFF TWICE PER DAY
     Route: 055
  13. ASPIRIN [Concomitant]

REACTIONS (3)
  - ARRHYTHMIA [None]
  - CORONARY ARTERY DISEASE [None]
  - DYSPNOEA [None]
